FAERS Safety Report 7554400-1 (Version None)
Quarter: 2011Q2

REPORT INFORMATION
  Report Type: 
  Country: None (occurrence: None)
  Receive Date: 20110617
  Receipt Date: 20090414
  Transmission Date: 20111010
  Serious: Yes (Hospitalization)
  Sender: FDA-Public Use
  Company Number: A0778747A

PATIENT
  Age: 57 Year
  Sex: Female

DRUGS (9)
  1. SYNTHROID [Concomitant]
  2. NEXIUM [Concomitant]
  3. PHENOBARBITAL TAB [Concomitant]
  4. MINOXIDIL [Concomitant]
  5. LAMICTAL [Suspect]
     Indication: EPILEPSY
     Dosage: 900MG PER DAY
     Route: 048
     Dates: start: 19960601
  6. LIPITOR [Concomitant]
  7. LEVOTHYROXINE SODIUM [Concomitant]
  8. ALLEGRA [Concomitant]
  9. TOVIAZ [Suspect]
     Indication: INCONTINENCE
     Route: 065
     Dates: start: 20110417

REACTIONS (14)
  - IRRITABILITY [None]
  - SWELLING FACE [None]
  - PAIN [None]
  - EYELID PTOSIS [None]
  - SCRATCH [None]
  - TREMOR [None]
  - URTICARIA [None]
  - FOOD ALLERGY [None]
  - INSOMNIA [None]
  - CONVULSION [None]
  - SOMNOLENCE [None]
  - DRUG INEFFECTIVE [None]
  - HOSTILITY [None]
  - CONFUSIONAL STATE [None]
